FAERS Safety Report 8921019 (Version 1)
Quarter: 2012Q4

REPORT INFORMATION
  Report Type: Report from Study
  Country: US (occurrence: US)
  Receive Date: 20121121
  Receipt Date: 20121121
  Transmission Date: 20130627
  Serious: Yes (Hospitalization)
  Sender: FDA-Public Use
  Company Number: US-ABBOTT-12P-163-1009810-00

PATIENT
  Age: 32 None
  Sex: Female
  Weight: 49.94 kg

DRUGS (6)
  1. LUPRON DEPOT [Suspect]
     Indication: POLYCYSTIC OVARIES
     Route: 030
  2. DEPAKOTE [Concomitant]
     Indication: CONVULSION
  3. KLONOPIN [Concomitant]
     Indication: PRODUCT USED FOR UNKNOWN INDICATION
  4. ANTIDEPRESSANTS [Concomitant]
     Indication: DEPRESSION
  5. MERCAPTOPURINE [Concomitant]
     Indication: CROHN^S DISEASE
  6. LORTAB [Concomitant]
     Indication: PAIN

REACTIONS (7)
  - Burns second degree [Not Recovered/Not Resolved]
  - Burns third degree [Not Recovered/Not Resolved]
  - Accident [Recovered/Resolved]
  - Dyspnoea [Recovering/Resolving]
  - Acute lung injury [Recovering/Resolving]
  - Skin graft failure [Not Recovered/Not Resolved]
  - Off label use [Not Recovered/Not Resolved]
